FAERS Safety Report 6326792-2 (Version None)
Quarter: 2009Q3

REPORT INFORMATION
  Report Type: 
  Country: None (occurrence: None)
  Receive Date: 20090825
  Receipt Date: 20090814
  Transmission Date: 20100115
  Serious: Yes (Other)
  Sender: FDA-Public Use
  Company Number: US-NOVOPROD-288908

PATIENT
  Age: 52 Year
  Sex: Male
  Weight: 128.35 kg

DRUGS (14)
  1. LEVEMIR [Suspect]
     Indication: TYPE 2 DIABETES MELLITUS
     Dosage: 60 IU, BID
     Route: 058
     Dates: start: 20090422
  2. NOVOLOG [Suspect]
     Indication: TYPE 2 DIABETES MELLITUS
     Route: 058
     Dates: start: 20090422
  3. ZANTAC                             /00550801/ [Concomitant]
     Route: 048
     Dates: start: 20090422
  4. LISINOPRIL                         /00894002/ [Concomitant]
     Route: 048
     Dates: start: 20090422
  5. GABAPENTIN [Concomitant]
     Dates: start: 20090422
  6. GLIMEPIRIDE [Concomitant]
     Dates: start: 20090422
  7. METOPROLOL [Concomitant]
     Dates: start: 20090422
  8. AMITRIPTYLINE [Concomitant]
     Dates: start: 20090422
  9. IMDUR [Concomitant]
     Dates: start: 20090422
  10. NITROGLYCERIN [Concomitant]
     Route: 060
     Dates: start: 20090422
  11. ASPIRIN [Concomitant]
     Dates: start: 20090422
  12. CARAFATE [Concomitant]
     Dates: start: 20090422
  13. RANITIDINE HCL [Concomitant]
     Dates: start: 20090422
  14. KEPPRA [Concomitant]
     Dates: start: 20090422

REACTIONS (2)
  - ABDOMINAL HERNIA [None]
  - DEVICE BREAKAGE [None]
